FAERS Safety Report 15749458 (Version 2)
Quarter: 2018Q4

REPORT INFORMATION
  Report Type: Spontaneous
  Country: DE (occurrence: DE)
  Receive Date: 20181221
  Receipt Date: 20181224
  Transmission Date: 20190205
  Serious: Yes (Other)
  Sender: FDA-Public Use
  Company Number: DE-AUROBINDO-AUR-APL-2018-022869

PATIENT
  Age: 53 Year
  Sex: Female

DRUGS (7)
  1. NALOXONE [Suspect]
     Active Substance: NALOXONE
     Indication: NEURALGIA
  2. DULOXETINE. [Suspect]
     Active Substance: DULOXETINE
     Indication: RADICULOPATHY
     Dosage: UNK
     Route: 065
  3. DULOXETINE. [Suspect]
     Active Substance: DULOXETINE
     Indication: NEURALGIA
  4. NALOXONE [Suspect]
     Active Substance: NALOXONE
     Indication: RADICULOPATHY
     Dosage: UNK
     Route: 065
  5. LIDOCAINE. [Suspect]
     Active Substance: LIDOCAINE
     Indication: RADICULOPATHY
     Dosage: UNK
     Route: 061
  6. TILIDINE [Suspect]
     Active Substance: TILIDINE
     Indication: NEURALGIA
     Dosage: UNK
     Route: 065
  7. TAPENTADOL [Suspect]
     Active Substance: TAPENTADOL
     Indication: NEURALGIA
     Dosage: 300 MILLIGRAM, UNK
     Route: 065

REACTIONS (5)
  - Drug effect incomplete [Unknown]
  - Therapeutic response decreased [Unknown]
  - Cognitive disorder [Unknown]
  - Drug ineffective for unapproved indication [Unknown]
  - Product use in unapproved indication [Unknown]
